FAERS Safety Report 9752509 (Version 4)
Quarter: 2015Q1

REPORT INFORMATION
  Report Type: Report from Study
  Country: CA (occurrence: CA)
  Receive Date: 20131213
  Receipt Date: 20150312
  Transmission Date: 20150721
  Serious: Yes (Hospitalization, Other)
  Sender: FDA-Public Use
  Company Number: CA-AMGEN-CANSP2012053727

PATIENT
  Age: 84 Year
  Sex: Female
  Weight: 59.48 kg

DRUGS (5)
  1. VITAMIN D                          /00107901/ [Concomitant]
     Active Substance: ERGOCALCIFEROL
  2. VITAMIN B12 [Concomitant]
     Active Substance: CYANOCOBALAMIN
  3. PROLIA [Suspect]
     Active Substance: DENOSUMAB
     Indication: OSTEOPOROSIS POSTMENOPAUSAL
     Dosage: 60 MG, Q6MO
     Route: 058
     Dates: start: 20120705
  4. CALCIUM [Concomitant]
     Active Substance: CALCIUM
     Dosage: UNK
  5. TYLENOL [Concomitant]
     Active Substance: ACETAMINOPHEN

REACTIONS (27)
  - Clavicle fracture [Unknown]
  - Upper limb fracture [Not Recovered/Not Resolved]
  - Lower limb fracture [Not Recovered/Not Resolved]
  - Pyrexia [Unknown]
  - Bone pain [Not Recovered/Not Resolved]
  - Red blood cell count decreased [Unknown]
  - Arthritis [Not Recovered/Not Resolved]
  - Gastrointestinal pain [Not Recovered/Not Resolved]
  - Tendonitis [Not Recovered/Not Resolved]
  - Drug ineffective [Unknown]
  - Arthralgia [Unknown]
  - Dizziness [Not Recovered/Not Resolved]
  - Contusion [Unknown]
  - Fall [Not Recovered/Not Resolved]
  - Hernia [Not Recovered/Not Resolved]
  - Head injury [Not Recovered/Not Resolved]
  - Musculoskeletal pain [Unknown]
  - Peripheral swelling [Not Recovered/Not Resolved]
  - Insomnia [Not Recovered/Not Resolved]
  - Inflammation [Not Recovered/Not Resolved]
  - Dehydration [Unknown]
  - Calcification of muscle [Not Recovered/Not Resolved]
  - Pain [Unknown]
  - Pneumonia [Unknown]
  - Back pain [Not Recovered/Not Resolved]
  - Joint injury [Not Recovered/Not Resolved]
  - Pain in extremity [Not Recovered/Not Resolved]

NARRATIVE: CASE EVENT DATE: 20120705
